FAERS Safety Report 11966351 (Version 1)
Quarter: 2016Q1

REPORT INFORMATION
  Report Type: Spontaneous
  Country: US (occurrence: US)
  Receive Date: 20160127
  Receipt Date: 20160127
  Transmission Date: 20160526
  Serious: No
  Sender: FDA-Public Use
  Company Number: US-ALLERGAN-1519897US

PATIENT
  Age: 89 Year
  Sex: Female

DRUGS (1)
  1. BLEPHAMIDE [Suspect]
     Active Substance: PREDNISOLONE ACETATE\SULFACETAMIDE SODIUM
     Indication: EYE IRRITATION
     Dosage: UNK, QID
     Route: 047
     Dates: end: 20150831

REACTIONS (2)
  - Drug dose omission [Unknown]
  - Eye discharge [Not Recovered/Not Resolved]

NARRATIVE: CASE EVENT DATE: 20150831
